FAERS Safety Report 9532137 (Version 1)
Quarter: 2013Q2

REPORT INFORMATION
  Report Type: Spontaneous
  Country: US (occurrence: None)
  Receive Date: 20130418
  Receipt Date: 20130418
  Transmission Date: 20140414
  Serious: No
  Sender: FDA-Public Use
  Company Number: 2012PROUSA02236

PATIENT
  Sex: Male

DRUGS (1)
  1. PROVENGE (SIPULEUCEL-T) SUSPENSION, 250ML [Suspect]
     Indication: PROSTATE CANCER METASTATIC
     Dosage: 250 UNK, UNK, INTRAVENOUS

REACTIONS (4)
  - Decreased appetite [None]
  - Asthenia [None]
  - Pyrexia [None]
  - Chills [None]
